FAERS Safety Report 8574892-9 (Version None)
Quarter: 2012Q3

REPORT INFORMATION
  Report Type: 
  Country: None (occurrence: None)
  Receive Date: 20120807
  Receipt Date: 20120727
  Transmission Date: 20120928
  Serious: Yes (Other)
  Sender: FDA-Public Use
  Company Number: JP-VERTEX PHARMACEUTICALS INC.-AE-2012-011249

PATIENT
  Age: 46 Year
  Sex: Male

DRUGS (7)
  1. NIZATIDINE [Concomitant]
     Route: 048
     Dates: start: 20120614, end: 20120626
  2. MUCOSTA [Concomitant]
     Route: 048
     Dates: start: 20120627, end: 20120701
  3. PEGINTERFERON ALFA-2B [Concomitant]
     Indication: HEPATITIS C
     Route: 058
     Dates: start: 20120611, end: 20120706
  4. URSO 250 [Concomitant]
     Route: 048
     Dates: start: 20120507, end: 20120625
  5. TELAVIC [Suspect]
     Indication: HEPATITIS C
     Route: 048
     Dates: start: 20120611, end: 20120712
  6. RIBAVIRIN [Concomitant]
     Indication: HEPATITIS C
     Route: 048
     Dates: start: 20120611, end: 20120712
  7. GASMOTIN [Concomitant]
     Route: 048
     Dates: start: 20120713

REACTIONS (1)
  - DEPRESSION [None]
